FAERS Safety Report 8006201-8 (Version None)
Quarter: 2011Q4

REPORT INFORMATION
  Report Type: 
  Country: None (occurrence: None)
  Receive Date: 20111226
  Receipt Date: 20111222
  Transmission Date: 20120403
  Serious: Yes (Death)
  Sender: FDA-Public Use
  Company Number: PHHY2011AR111840

PATIENT
  Sex: Male

DRUGS (1)
  1. EXELON [Suspect]
     Indication: ATROPHY
     Dosage: 1 PATCH DAILY
     Route: 062
     Dates: start: 20110201

REACTIONS (2)
  - CARDIAC ARREST [None]
  - CONDITION AGGRAVATED [None]
